FAERS Safety Report 8054144-6 (Version None)
Quarter: 2012Q1

REPORT INFORMATION
  Report Type: 
  Country: None (occurrence: None)
  Receive Date: 20120118
  Receipt Date: 20120112
  Transmission Date: 20120608
  Serious: Yes (Hospitalization, Other)
  Sender: FDA-Public Use
  Company Number: US-PFIZER INC-2009211018

PATIENT
  Sex: Male
  Weight: 56.689 kg

DRUGS (11)
  1. VALIUM [Suspect]
     Dosage: UNK
     Dates: end: 20090501
  2. AMLODIPINE [Concomitant]
     Indication: HYPERTENSION
     Dosage: UNK
  3. SKELAXIN [Suspect]
     Dosage: UNK
     Dates: end: 20090507
  4. PERCOCET [Suspect]
     Dosage: UNK
     Dates: start: 20090601, end: 20090601
  5. AVONEX [Suspect]
     Indication: MULTIPLE SCLEROSIS
     Dosage: UNK
     Route: 030
     Dates: start: 19990408
  6. VICODIN [Concomitant]
     Dates: end: 20090507
  7. AVONEX [Suspect]
     Dosage: UNK
     Dates: end: 20090409
  8. LYRICA [Suspect]
     Indication: SCIATICA
     Dosage: 75 MG, 1X/DAY
     Route: 048
     Dates: start: 20090507, end: 20090601
  9. LYRICA [Suspect]
     Indication: PAIN
     Dosage: 75 MG, 2X/DAY
  10. DILAUDID [Suspect]
     Dosage: UNK
     Dates: start: 20090601, end: 20090601
  11. FLEXERIL [Suspect]
     Dosage: UNK
     Dates: start: 20090601, end: 20090601

REACTIONS (15)
  - SLEEP DISORDER [None]
  - COMA [None]
  - JOINT SWELLING [None]
  - SLEEP TALKING [None]
  - OEDEMA PERIPHERAL [None]
  - INTERVERTEBRAL DISC PROTRUSION [None]
  - MULTIPLE SCLEROSIS [None]
  - WEIGHT DECREASED [None]
  - FEELING DRUNK [None]
  - DEAFNESS [None]
  - INSOMNIA [None]
  - APNOEIC ATTACK [None]
  - BURNING SENSATION [None]
  - BACK DISORDER [None]
  - DIZZINESS [None]
